FAERS Safety Report 20753556 (Version 2)
Quarter: 2023Q2

REPORT INFORMATION
  Report Type: Spontaneous
  Country: US (occurrence: None)
  Receive Date: 20220426
  Receipt Date: 20230420
  Transmission Date: 20230721
  Serious: No
  Sender: FDA-Public Use
  Company Number: US-ROCHE-3006136

PATIENT
  Sex: Male

DRUGS (1)
  1. ESBRIET [Suspect]
     Active Substance: PIRFENIDONE
     Indication: Pulmonary fibrosis
     Dosage: TAKE 1 OR 2 TABLETS DURING HIS LUNCH DOSE
     Route: 048
     Dates: start: 20201222

REACTIONS (2)
  - Headache [Unknown]
  - COVID-19 [Unknown]
